FAERS Safety Report 6195276-7 (Version None)
Quarter: 2009Q2

REPORT INFORMATION
  Report Type: 
  Country: None (occurrence: None)
  Receive Date: 20090519
  Receipt Date: 20090504
  Transmission Date: 20091009
  Serious: Yes (Other)
  Sender: FDA-Public Use
  Company Number: CA-AVENTIS-200818757GDDC

PATIENT
  Age: 56 Year
  Sex: Female

DRUGS (17)
  1. LANTUS [Suspect]
     Route: 058
     Dates: start: 20060901
  2. LANTUS [Suspect]
     Route: 058
  3. AUTOPEN 24 [Suspect]
     Route: 058
  4. NOVORAPID [Suspect]
     Dosage: DOSE: SLIDING SCALE
     Route: 058
  5. LOSEC                              /00661201/ [Concomitant]
     Indication: IRRITABLE BOWEL SYNDROME
  6. CIMETIDINE HCL [Concomitant]
     Dates: end: 20070901
  7. ASCORBIC ACID [Concomitant]
     Route: 048
  8. ENZYMES [Concomitant]
     Indication: GASTRITIS
     Route: 048
  9. ENZYMES [Concomitant]
     Route: 048
  10. UNKNOWN DRUG [Concomitant]
     Indication: GASTROINTESTINAL DISORDER
     Route: 048
  11. UNKNOWN DRUG [Concomitant]
     Indication: BLOOD GLUCOSE INCREASED
     Route: 048
  12. UNKNOWN DRUG [Concomitant]
  13. PSYLLIUM HUSK [Concomitant]
     Route: 048
  14. MEGACAL                            /00108001/ [Concomitant]
     Route: 048
  15. UNKNOWN DRUG [Concomitant]
     Route: 048
  16. UNKNOWN DRUG [Concomitant]
     Route: 048
  17. MARSHMALLOW ROOT [Concomitant]
     Route: 048

REACTIONS (7)
  - ABDOMINAL DISCOMFORT [None]
  - ANORECTAL DISCOMFORT [None]
  - BLOOD GLUCOSE FLUCTUATION [None]
  - HALLUCINATION [None]
  - HEADACHE [None]
  - HYPERGLYCAEMIA [None]
  - HYPOAESTHESIA [None]
